FAERS Safety Report 6544911-X (Version None)
Quarter: 2010Q1

REPORT INFORMATION
  Report Type: 
  Country: None (occurrence: None)
  Receive Date: 20100121
  Receipt Date: 20100113
  Transmission Date: 20100710
  Serious: Yes (Hospitalization)
  Sender: FDA-Public Use
  Company Number: US-ASTRAZENECA-2010SE01523

PATIENT
  Age: 752 Month
  Sex: Female
  Weight: 117 kg

DRUGS (4)
  1. ARIMIDEX [Suspect]
     Indication: BREAST CANCER
     Route: 048
     Dates: start: 20090201, end: 20100106
  2. ADVIL [Concomitant]
  3. VITAMIN D [Concomitant]
  4. PSORIASIS CREAMS [Concomitant]

REACTIONS (3)
  - ARTHRALGIA [None]
  - CELLULITIS [None]
  - PAROTITIS [None]
